FAERS Safety Report 8001037-6 (Version None)
Quarter: 2011Q4

REPORT INFORMATION
  Report Type: 
  Country: None (occurrence: None)
  Receive Date: 20111222
  Receipt Date: 20110712
  Transmission Date: 20120403
  Serious: No
  Sender: FDA-Public Use
  Company Number: US-GLAXOSMITHKLINE-A0936880A

PATIENT
  Age: 63 Year
  Sex: Female

DRUGS (1)
  1. FLOVENT [Suspect]
     Route: 065

REACTIONS (1)
  - OFF LABEL USE [None]
